FAERS Safety Report 5201316-1 (Version None)
Quarter: 2007Q1

REPORT INFORMATION
  Report Type: 
  Country: None (occurrence: None)
  Receive Date: 20070108
  Receipt Date: 20061225
  Transmission Date: 20070707
  Serious: Yes (Death, Hospitalization)
  Sender: FDA-Public Use
  Company Number: JP-SHR-JP-2006-028142

PATIENT
  Age: 68 Year
  Sex: Female

DRUGS (9)
  1. LASIX [Concomitant]
     Dosage: 50 MG, 1X/DAY
     Route: 042
     Dates: start: 20050222, end: 20050225
  2. LASIX [Concomitant]
     Dosage: 30 MG, 1X/DAY
     Route: 042
     Dates: start: 20050226, end: 20050303
  3. LASIX [Concomitant]
     Dosage: 60 MG, 1X/DAY
     Route: 048
     Dates: start: 20050304, end: 20050915
  4. LASIX [Concomitant]
     Dosage: 50 MG, 1X/DAY
     Route: 042
     Dates: start: 20050730, end: 20050730
  5. LASIX [Concomitant]
     Dosage: 10 MG, 1X/DAY
     Route: 042
     Dates: start: 20050801, end: 20050808
  6. LASIX [Concomitant]
     Dosage: 20 MG, 1X/DAY
     Route: 048
     Dates: start: 20050918, end: 20050918
  7. CATABON [Concomitant]
     Dosage: 108 MG, 1X/DAY
     Route: 042
     Dates: start: 20050918, end: 20050918
  8. LANIRAPID [Concomitant]
     Dosage: .05 MG, 1X/DAY
     Route: 048
     Dates: start: 20050311, end: 20050918
  9. SOTALOL TABLET [Suspect]
     Indication: VENTRICULAR TACHYCARDIA
     Dosage: 40 MG, 2X/DAY
     Route: 048
     Dates: start: 20050222, end: 20050918

REACTIONS (1)
  - CARDIAC FAILURE [None]
